FAERS Safety Report 6272641-0 (Version None)
Quarter: 2009Q3

REPORT INFORMATION
  Report Type: 
  Country: None (occurrence: None)
  Receive Date: 20090716
  Receipt Date: 20090716
  Transmission Date: 20100115
  Serious: No
  Sender: FDA-Public Use
  Company Number: None

PATIENT
  Age: 62 Year
  Sex: Female
  Weight: 83.9154 kg

DRUGS (2)
  1. SORAFENIB [Suspect]
     Dosage: 200 MG BID
     Dates: start: 20080409, end: 20080428
  2. TEMOZOLOMIDE [Suspect]
     Dosage: 75 MG BID
     Dates: start: 20080417, end: 20080423

REACTIONS (3)
  - DISEASE PROGRESSION [None]
  - GENERAL PHYSICAL HEALTH DETERIORATION [None]
  - LYMPHOCYTE PERCENTAGE DECREASED [None]
